FAERS Safety Report 13334985 (Version 1)
Quarter: 2017Q1

REPORT INFORMATION
  Report Type: Spontaneous
  Country: US (occurrence: US)
  Receive Date: 20170314
  Receipt Date: 20170314
  Transmission Date: 20170428
  Serious: No
  Sender: FDA-Public Use
  Company Number: US-009507513-1703USA003019

PATIENT

DRUGS (1)
  1. BRIDION [Suspect]
     Active Substance: SUGAMMADEX
     Indication: DYSPNOEA
     Dosage: 2 SINGLE IV BOLUS DOSES
     Route: 042

REACTIONS (2)
  - Product use issue [Unknown]
  - No adverse event [Unknown]
